FAERS Safety Report 8581038-X (Version None)
Quarter: 2012Q3

REPORT INFORMATION
  Report Type: 
  Country: None (occurrence: None)
  Receive Date: 20120809
  Receipt Date: 20120801
  Transmission Date: 20120928
  Serious: Yes (Other)
  Sender: FDA-Public Use
  Company Number: GB-ACCORD-014335

PATIENT
  Age: 46 Year
  Sex: Female
  Weight: 70 kg

DRUGS (4)
  1. PROCYCLIDINE HYDROCHLORIDE 2MG TAB [Concomitant]
     Dosage: AS NECESSARY
     Route: 048
     Dates: start: 20120601, end: 20120712
  2. HALOPERIDOL [Concomitant]
     Indication: SCHIZOAFFECTIVE DISORDER
     Dosage: 2 MG IN THE MORNING AND 4 MG AT NIGHT
     Route: 048
     Dates: start: 20120401, end: 20120712
  3. QUETIAPINE FUMARATE [Suspect]
     Indication: SCHIZOAFFECTIVE DISORDER
     Route: 048
     Dates: start: 20120710, end: 20120716
  4. INSULIN [Concomitant]
     Indication: TYPE 1 DIABETES MELLITUS

REACTIONS (2)
  - RESPIRATORY TRACT OEDEMA [None]
  - SWELLING FACE [None]
